FAERS Safety Report 4594927-8 (Version None)
Quarter: 2005Q1

REPORT INFORMATION
  Report Type: 
  Country: None (occurrence: None)
  Receive Date: 20050225
  Receipt Date: 20050210
  Transmission Date: 20050727
  Serious: Yes (Hospitalization, Other)
  Sender: FDA-Public Use
  Company Number: USA-2004-0014921

PATIENT
  Age: 61 Year
  Sex: Male
  Weight: 77.1 kg

DRUGS (6)
  1. OXYCONTIN [Suspect]
     Indication: PAIN
     Dosage: SEE IMAGE
  2. PREDNISONE [Concomitant]
  3. METHOTREXATE [Concomitant]
  4. ZANTAC [Concomitant]
  5. CELEBREX [Concomitant]
  6. REMICADE [Concomitant]

REACTIONS (16)
  - ACTINIC KERATOSIS [None]
  - ANXIETY [None]
  - CELLULITIS [None]
  - CHEST PAIN [None]
  - CONSTIPATION [None]
  - DELUSIONAL DISORDER, UNSPECIFIED TYPE [None]
  - DEPRESSION [None]
  - DRUG DEPENDENCE [None]
  - DRUG WITHDRAWAL SYNDROME [None]
  - EJACULATION DISORDER [None]
  - LENTIGO [None]
  - OBSESSIVE-COMPULSIVE DISORDER [None]
  - PAIN [None]
  - PARANOIA [None]
  - SKIN LESION [None]
  - SKIN NODULE [None]
